FAERS Safety Report 26059893 (Version 2)
Quarter: 2025Q4

REPORT INFORMATION
  Report Type: Spontaneous
  Country: EU (occurrence: EU)
  Receive Date: 20251118
  Receipt Date: 20251124
  Transmission Date: 20260117
  Serious: Yes (Hospitalization)
  Sender: TEVA
  Company Number: EU-TEVA-VS-3393015

PATIENT
  Age: 41 Year
  Sex: Male

DRUGS (25)
  1. PREDNISONE [Suspect]
     Active Substance: PREDNISONE
     Indication: Diffuse large B-cell lymphoma
     Dosage: PART OF FIRST-LINE CHEMOTHERAPY IN DA-EPOCH SCHEME
     Route: 065
     Dates: start: 2021
  2. DEXAMETHASONE [Suspect]
     Active Substance: DEXAMETHASONE
     Indication: Diffuse large B-cell lymphoma
     Dosage: PART OF SECOND-LINE CHEMOTHERAPY IN R-DHAOX REGIMEN
     Route: 065
  3. DOXORUBICIN [Suspect]
     Active Substance: DOXORUBICIN
     Indication: Diffuse large B-cell lymphoma
     Dosage: PART OF FIRST-LINE CHEMOTHERAPY IN DA-EPOCH SCHEME, HYDROCHLORIDE
     Route: 065
     Dates: start: 2021
  4. COVID-19 VACCINE NOS [Suspect]
     Active Substance: COVID-19 VACCINE
     Indication: COVID-19 immunisation
     Route: 065
  5. ETHAMBUTOL [Suspect]
     Active Substance: ETHAMBUTOL HYDROCHLORIDE
     Indication: Tuberculosis
     Route: 065
  6. TOCILIZUMAB [Suspect]
     Active Substance: TOCILIZUMAB
     Indication: Cytokine release syndrome
     Dosage: TWO DOSES OF TOCILIZUMAB
     Route: 065
  7. RIFAMPIN [Interacting]
     Active Substance: RIFAMPIN
     Indication: Tuberculosis
     Route: 065
  8. PYRAZINAMIDE [Suspect]
     Active Substance: PYRAZINAMIDE
     Indication: Tuberculosis
     Route: 065
  9. AXICABTAGENE CILOLEUCEL [Suspect]
     Active Substance: AXICABTAGENE CILOLEUCEL
     Indication: Diffuse large B-cell lymphoma
     Route: 065
  10. ETOPOSIDE [Suspect]
     Active Substance: ETOPOSIDE
     Indication: Diffuse large B-cell lymphoma
     Dosage: PART OF FIRST-LINE CHEMOTHERAPY IN DA-EPOCH SCHEME, PHOSPHATE
     Route: 065
     Dates: start: 2021
  11. CYTARABINE [Suspect]
     Active Substance: CYTARABINE
     Indication: Diffuse large B-cell lymphoma
     Dosage: PART OF SECOND-LINE CHEMOTHERAPY IN R-DHAOX REGIMEN
     Route: 065
  12. ANAKINRA [Suspect]
     Active Substance: ANAKINRA
     Indication: Immune effector cell-associated neurotoxicity syndrome
     Route: 065
  13. VINCRISTINE [Suspect]
     Active Substance: VINCRISTINE
     Indication: Diffuse large B-cell lymphoma
     Dosage: PART OF FIRST-LINE CHEMOTHERAPY IN DA-EPOCH SCHEME, SULFATE
     Route: 065
     Dates: start: 2021
  14. OXALIPLATIN [Suspect]
     Active Substance: OXALIPLATIN
     Indication: Diffuse large B-cell lymphoma
     Dosage: PART OF SECOND-LINE CHEMOTHERAPY IN R-DHAOX REGIMEN
     Route: 065
     Dates: start: 2021
  15. SOTROVIMAB [Suspect]
     Active Substance: SOTROVIMAB
     Indication: COVID-19
     Dosage: SINGLE DOSE
     Route: 065
     Dates: start: 2021
  16. FLUDARABINE [Suspect]
     Active Substance: FLUDARABINE PHOSPHATE
     Indication: Bone marrow conditioning regimen
     Dosage: ON DAYS 1-3
     Route: 065
  17. ISONIAZID [Suspect]
     Active Substance: ISONIAZID
     Indication: Tuberculosis
     Route: 065
  18. ISONIAZID [Suspect]
     Active Substance: ISONIAZID
     Indication: Tuberculosis
     Route: 065
  19. RITUXIMAB [Suspect]
     Active Substance: RITUXIMAB
     Indication: Diffuse large B-cell lymphoma
     Dosage: SECOND-LINE CHEMOTHERAPY IN R-DHAOX REGIMEN
     Route: 065
  20. RITUXIMAB [Suspect]
     Active Substance: RITUXIMAB
     Indication: Diffuse large B-cell lymphoma
     Dosage: PART OF FIRST-LINE CHEMOTHERAPY IN DA-EPOCH SCHEME
     Route: 065
     Dates: start: 2021
  21. CYCLOPHOSPHAMIDE [Suspect]
     Active Substance: CYCLOPHOSPHAMIDE
     Indication: Diffuse large B-cell lymphoma
     Dosage: ON DAYS 1-3 AS A CONDITIONING THERAPY
     Route: 065
  22. CYCLOPHOSPHAMIDE [Suspect]
     Active Substance: CYCLOPHOSPHAMIDE
     Indication: Diffuse large B-cell lymphoma
     Dosage: PART OF FIRST-LINE CHEMOTHERAPY IN DA-EPOCH SCHEME
     Route: 065
     Dates: start: 2021
  23. LEVOFLOXACIN [Suspect]
     Active Substance: LEVOFLOXACIN
     Indication: Tuberculosis
     Route: 065
  24. NIRMATRELVIR [Concomitant]
     Active Substance: NIRMATRELVIR
     Indication: Mediastinal mass
  25. RITONAVIR [Concomitant]
     Active Substance: RITONAVIR
     Indication: Mediastinal mass

REACTIONS (9)
  - Aspergillus infection [Recovered/Resolved]
  - Drug ineffective [Unknown]
  - Vaccination failure [Unknown]
  - Immune effector cell-associated neurotoxicity syndrome [Unknown]
  - Drug interaction [Unknown]
  - Pyrexia [Recovered/Resolved]
  - Cytokine release syndrome [Unknown]
  - Febrile neutropenia [Recovered/Resolved]
  - Tuberculosis [Recovered/Resolved]
